FAERS Safety Report 21629052 (Version 1)
Quarter: 2022Q4

REPORT INFORMATION
  Report Type: Report from Study
  Country: US (occurrence: US)
  Receive Date: 20221122
  Receipt Date: 20221122
  Transmission Date: 20230113
  Serious: No
  Sender: FDA-Public Use
  Company Number: US-ABBVIE-22K-163-4430666-00

PATIENT
  Age: 65 Year
  Sex: Female

DRUGS (1)
  1. HUMIRA [Suspect]
     Active Substance: ADALIMUMAB
     Indication: Rheumatoid arthritis
     Route: 058

REACTIONS (11)
  - Intervertebral disc degeneration [Unknown]
  - Neck pain [Unknown]
  - Unevaluable event [Not Recovered/Not Resolved]
  - Cervical spinal stenosis [Unknown]
  - Pain [Not Recovered/Not Resolved]
  - Spondylitic myelopathy [Unknown]
  - Arthralgia [Not Recovered/Not Resolved]
  - Cervical radiculopathy [Unknown]
  - Poor quality sleep [Unknown]
  - Drug ineffective [Unknown]
  - Spondylolisthesis [Unknown]

NARRATIVE: CASE EVENT DATE: 20220608
